FAERS Safety Report 9914834 (Version 2)
Quarter: 2014Q1

REPORT INFORMATION
  Report Type: Report from Study
  Country: AR (occurrence: AR)
  Receive Date: 20140220
  Receipt Date: 20140220
  Transmission Date: 20141002
  Serious: Yes (Death, Hospitalization, Other)
  Sender: FDA-Public Use
  Company Number: PHHY2014AR007296

PATIENT
  Age: 77 Year
  Sex: Male

DRUGS (1)
  1. ONBREZ [Suspect]
     Indication: CHRONIC OBSTRUCTIVE PULMONARY DISEASE
     Dosage: UNK UKN, QD
     Route: 055
     Dates: start: 201312

REACTIONS (5)
  - Cardio-respiratory arrest [Fatal]
  - Pneumonia [Recovering/Resolving]
  - Lung disorder [Unknown]
  - Renal disorder [Unknown]
  - Infection [Unknown]
